FAERS Safety Report 16850481 (Version 1)
Quarter: 2019Q3

REPORT INFORMATION
  Report Type: Spontaneous
  Country: AU (occurrence: AU)
  Receive Date: 20190925
  Receipt Date: 20190925
  Transmission Date: 20191005
  Serious: Yes (Hospitalization)
  Sender: FDA-Public Use
  Company Number: AU-SA-2019SA258990

PATIENT
  Age: 49 Year
  Sex: Male
  Weight: 72 kg

DRUGS (9)
  1. LEUCOVORIN [CALCIUM FOLINATE] [Suspect]
     Active Substance: LEUCOVORIN
     Indication: COLORECTAL CANCER METASTATIC
     Dosage: 50 MG, QOW
     Route: 040
  2. FLUOROURACIL. [Suspect]
     Active Substance: FLUOROURACIL
     Indication: COLORECTAL CANCER STAGE IV
     Dosage: 2400 UNK
     Route: 042
  3. LEUCOVORIN [CALCIUM FOLINATE] [Suspect]
     Active Substance: LEUCOVORIN
     Indication: METASTASES TO LIVER
  4. LEUCOVORIN [CALCIUM FOLINATE] [Suspect]
     Active Substance: LEUCOVORIN
     Indication: COLORECTAL CANCER STAGE IV
  5. OXALIPLATIN. [Suspect]
     Active Substance: OXALIPLATIN
     Indication: COLORECTAL CANCER STAGE IV
     Dosage: UNK UNK, QOW (TWO-WEEKLY CYCLES)INFUSION
     Route: 042
  6. FLUOROURACIL. [Suspect]
     Active Substance: FLUOROURACIL
     Indication: METASTASES TO LIVER
  7. OXALIPLATIN. [Suspect]
     Active Substance: OXALIPLATIN
     Indication: METASTASES TO LIVER
  8. OXALIPLATIN. [Suspect]
     Active Substance: OXALIPLATIN
     Indication: COLORECTAL CANCER METASTATIC
  9. FLUOROURACIL. [Suspect]
     Active Substance: FLUOROURACIL
     Indication: COLORECTAL CANCER METASTATIC
     Dosage: 400 MG/M2, QOW
     Route: 042

REACTIONS (2)
  - Vascular pseudoaneurysm [Recovered/Resolved]
  - Oedema peripheral [Recovered/Resolved]
